FAERS Safety Report 18528916 (Version 3)
Quarter: 2022Q1

REPORT INFORMATION
  Report Type: Spontaneous
  Country: US (occurrence: US)
  Receive Date: 20201120
  Receipt Date: 20220131
  Transmission Date: 20220423
  Serious: No
  Sender: FDA-Public Use
  Company Number: US-PFIZER INC-2018037123

PATIENT
  Age: 70 Year
  Sex: Female

DRUGS (1)
  1. XELJANZ XR [Suspect]
     Active Substance: TOFACITINIB CITRATE
     Dosage: 11 MG

REACTIONS (3)
  - Product prescribing error [Unknown]
  - Confusional state [Unknown]
  - Seasonal allergy [Unknown]
